FAERS Safety Report 4499068-6 (Version None)
Quarter: 2004Q4

REPORT INFORMATION
  Report Type: 
  Country: None (occurrence: None)
  Receive Date: 20041111
  Receipt Date: 20041103
  Transmission Date: 20050328
  Serious: Yes (Life-Threatening)
  Sender: FDA-Public Use
  Company Number: AU-BRISTOL-MYERS SQUIBB COMPANY-12755807

PATIENT
  Age: 50 Year
  Sex: Male

DRUGS (4)
  1. PACLITAXEL [Suspect]
     Route: 042
     Dates: start: 20030711, end: 20030711
  2. DEXAMETHASONE [Suspect]
     Indication: PREMEDICATION
     Route: 048
     Dates: start: 20030710, end: 20030711
  3. RANITIDINE [Suspect]
     Indication: PREMEDICATION
     Route: 042
     Dates: start: 20030711, end: 20030711
  4. PROMETHAZINE [Suspect]
     Indication: PREMEDICATION
     Route: 042
     Dates: start: 20030711, end: 20040711

REACTIONS (3)
  - BURNING SENSATION [None]
  - DYSPNOEA EXACERBATED [None]
  - HEADACHE [None]
